FAERS Safety Report 8991381 (Version 1)
Quarter: 2012Q4

REPORT INFORMATION
  Report Type: 
  Country: DK (occurrence: DK)
  Receive Date: 20121229
  Receipt Date: 20121229
  Transmission Date: 20130627
  Serious: Yes (Other)
  Sender: FDA-Public Use
  Company Number: DK-MUTUAL PHARMACEUTICAL COMPANY, INC.-GBPN20120001

PATIENT
  Sex: Male

DRUGS (8)
  1. GABAPENTIN [Suspect]
     Indication: NEUROPATHIC PAIN
     Route: 048
     Dates: start: 20090220, end: 20090912
  2. DIAZEPAM [Suspect]
     Indication: PAIN
     Route: 048
     Dates: start: 200901, end: 2010
  3. CYMBALTA [Suspect]
     Indication: PAIN
     Route: 048
     Dates: start: 20090626, end: 20100226
  4. LIPITOR [Concomitant]
     Indication: BLOOD CHOLESTEROL INCREASED
     Route: 065
  5. HJERDYL (ACETYLSALICYLIC ACID) [Concomitant]
     Indication: DRUG USE FOR UNKNOWN INDICATION
     Route: 065
  6. LYRICA (PREGABALIN) [Concomitant]
     Indication: PAIN
     Route: 065
     Dates: start: 20090810, end: 20100226
  7. METHADONE (METHADONE) [Concomitant]
     Indication: PAIN
     Route: 065
     Dates: start: 20090626, end: 20100302
  8. KETAINE (KETAMINE) [Concomitant]
     Indication: PAIN
     Route: 065
     Dates: start: 20090810, end: 20100226

REACTIONS (5)
  - Erectile dysfunction [Unknown]
  - Disturbance in attention [Not Recovered/Not Resolved]
  - Tooth disorder [Unknown]
  - Fine motor delay [Unknown]
  - Drug ineffective [Unknown]
